FAERS Safety Report 21956083 (Version 1)
Quarter: 2023Q1

REPORT INFORMATION
  Report Type: Report from Study
  Country: US (occurrence: US)
  Receive Date: 20230206
  Receipt Date: 20230206
  Transmission Date: 20230417
  Serious: No
  Sender: FDA-Public Use
  Company Number: US-002147023-NVSC2023US020388

PATIENT
  Sex: Female

DRUGS (4)
  1. COSENTYX [Suspect]
     Active Substance: SECUKINUMAB
     Indication: Psoriasis
     Dosage: 150 MG, Q4W (EVERY 4 WEEKS)
     Route: 058
  2. HALOBETASOL PROPIONATE [Suspect]
     Active Substance: HALOBETASOL PROPIONATE
     Indication: Product used for unknown indication
     Dosage: UNK
     Route: 061
  3. HYDROCORTISONE [Suspect]
     Active Substance: HYDROCORTISONE
     Indication: Psoriasis
     Dosage: UNK
     Route: 061
  4. OMEPRAZOLE [Suspect]
     Active Substance: OMEPRAZOLE
     Indication: Product used for unknown indication
     Route: 065

REACTIONS (10)
  - Skin lesion [Unknown]
  - Actinic keratosis [Unknown]
  - Rash erythematous [Unknown]
  - Acne [Unknown]
  - Papule [Unknown]
  - Pustule [Unknown]
  - Dermatitis psoriasiform [Unknown]
  - Macule [Unknown]
  - Cyst [Unknown]
  - Seborrhoeic keratosis [Unknown]
